FAERS Safety Report 12278254 (Version 2)
Quarter: 2016Q2

REPORT INFORMATION
  Report Type: Spontaneous
  Country: US (occurrence: US)
  Receive Date: 20160418
  Receipt Date: 20160606
  Transmission Date: 20160815
  Serious: Yes (Other)
  Sender: FDA-Public Use
  Company Number: US-TEVA-651099USA

PATIENT
  Age: 66 Year
  Sex: Female

DRUGS (12)
  1. AMLOD/VALSAR [Concomitant]
  2. TIZANIDINE. [Concomitant]
     Active Substance: TIZANIDINE
  3. DULOXETINE. [Concomitant]
     Active Substance: DULOXETINE
  4. ALENDRONATE [Concomitant]
     Active Substance: ALENDRONATE SODIUM
  5. AMPYRA [Concomitant]
     Active Substance: DALFAMPRIDINE
  6. ILEVRO [Concomitant]
     Active Substance: NEPAFENAC
  7. OXYBUTININ [Concomitant]
     Active Substance: OXYBUTYNIN
  8. GABAPENTIN. [Concomitant]
     Active Substance: GABAPENTIN
  9. COPAXONE [Suspect]
     Active Substance: GLATIRAMER ACETATE
     Indication: MULTIPLE SCLEROSIS
     Route: 058
     Dates: start: 20140919
  10. FLUTICASONE [Concomitant]
     Active Substance: FLUTICASONE\FLUTICASONE PROPIONATE
  11. OXYCODONE AND ACETAMINOPHEN [Concomitant]
     Active Substance: ACETAMINOPHEN\OXYCODONE HYDROCHLORIDE
  12. CIPROFLOXACIN. [Concomitant]
     Active Substance: CIPROFLOXACIN

REACTIONS (1)
  - Multiple sclerosis relapse [Not Recovered/Not Resolved]

NARRATIVE: CASE EVENT DATE: 201601
